FAERS Safety Report 5915758-X (Version None)
Quarter: 2008Q4

REPORT INFORMATION
  Report Type: 
  Country: None (occurrence: None)
  Receive Date: 20081010
  Receipt Date: 20081001
  Transmission Date: 20090506
  Serious: Yes (Death, Hospitalization)
  Sender: FDA-Public Use
  Company Number: JP-ASTRAZENECA-2006SE06033

PATIENT
  Sex: Male
  Weight: 52 kg

DRUGS (6)
  1. BLOPRESS [Suspect]
     Indication: CARDIAC FAILURE CHRONIC
     Route: 048
     Dates: start: 20061005, end: 20061030
  2. WARFARIN SODIUM [Suspect]
     Indication: ATRIAL THROMBOSIS
     Route: 048
     Dates: end: 20061030
  3. DIART [Concomitant]
     Indication: CARDIAC FAILURE CHRONIC
     Route: 048
     Dates: end: 20061030
  4. LANIRAPID [Concomitant]
     Indication: CARDIAC FAILURE CHRONIC
     Route: 048
     Dates: end: 20061030
  5. MAINTATE [Concomitant]
     Indication: CARDIAC FAILURE CHRONIC
     Route: 048
     Dates: end: 20061030
  6. MUCOSTA [Concomitant]
     Indication: PROPHYLAXIS AGAINST GASTROINTESTINAL ULCER
     Route: 048
     Dates: end: 20061030

REACTIONS (1)
  - CEREBRAL HAEMORRHAGE [None]
